FAERS Safety Report 7078747-0 (Version None)
Quarter: 2010Q4

REPORT INFORMATION
  Report Type: 
  Country: None (occurrence: None)
  Receive Date: 20101102
  Receipt Date: 20101021
  Transmission Date: 20110411
  Serious: Yes (Other)
  Sender: FDA-Public Use
  Company Number: US-PFIZER INC-2010125693

PATIENT
  Sex: Female
  Weight: 57.596 kg

DRUGS (5)
  1. CHANTIX [Suspect]
     Indication: SMOKING CESSATION THERAPY
     Dosage: 0.5 MG, 1X/DAY
     Route: 048
     Dates: start: 20080701
  2. CHANTIX [Suspect]
     Dosage: 1 MG, 2X/DAY
     Route: 048
     Dates: end: 20080918
  3. HYDROXYZINE HYDROCHLORIDE [Suspect]
  4. LEXAPRO [Concomitant]
     Dosage: UNK
  5. BUPRENORPHINE HCL AND NALOXONE HCL [Concomitant]
     Dosage: UNK

REACTIONS (10)
  - ACCIDENTAL OVERDOSE [None]
  - BLOOD PRESSURE SYSTOLIC DECREASED [None]
  - BLOOD URINE PRESENT [None]
  - IRRITABILITY [None]
  - MULTIPLE DRUG OVERDOSE [None]
  - SINUS BRADYCARDIA [None]
  - SOMNAMBULISM [None]
  - SOMNOLENCE [None]
  - TREATMENT NONCOMPLIANCE [None]
  - URINE CANNABINOIDS INCREASED [None]
